FAERS Safety Report 18735615 (Version 4)
Quarter: 2021Q2

REPORT INFORMATION
  Report Type: Report from Study
  Country: US (occurrence: US)
  Receive Date: 20210113
  Receipt Date: 20210604
  Transmission Date: 20210717
  Serious: No
  Sender: FDA-Public Use
  Company Number: US-BIOVITRUM-2020US7109

PATIENT
  Sex: Female

DRUGS (3)
  1. KINERET [Suspect]
     Active Substance: ANAKINRA
     Route: 058
     Dates: start: 20201119
  2. KINERET [Suspect]
     Active Substance: ANAKINRA
     Indication: RHEUMATOID ARTHRITIS
     Route: 058
     Dates: start: 20201118
  3. KINERET [Suspect]
     Active Substance: ANAKINRA
     Route: 058
     Dates: start: 20201109

REACTIONS (19)
  - Hypersomnia [Unknown]
  - Injection site haemorrhage [Unknown]
  - Injection site erythema [Unknown]
  - Product dose omission issue [Unknown]
  - Insomnia [Unknown]
  - Skin discolouration [Unknown]
  - Infection [Unknown]
  - Hyperhidrosis [Unknown]
  - Confusional state [Unknown]
  - Injection site rash [Unknown]
  - Injection site warmth [Unknown]
  - Anxiety [Unknown]
  - Peripheral coldness [Unknown]
  - Burning sensation [Unknown]
  - Pain [Unknown]
  - Peripheral swelling [Unknown]
  - Memory impairment [Unknown]
  - Oedema peripheral [Unknown]
  - Fatigue [Unknown]
